FAERS Safety Report 16207549 (Version 1)
Quarter: 2019Q2

REPORT INFORMATION
  Report Type: Spontaneous
  Country: US (occurrence: US)
  Receive Date: 20190313
  Receipt Date: 20190313
  Transmission Date: 20190711
  Serious: No
  Sender: FDA-Public Use
  Company Number: None

PATIENT
  Age: 68 Year
  Sex: Female
  Weight: 93.44 kg

DRUGS (1)
  1. REMICADE [Suspect]
     Active Substance: INFLIXIMAB
     Indication: PSORIASIS
     Dosage: ?          OTHER FREQUENCY:WEEKS 0,2,6;?
     Route: 042
     Dates: start: 201901

REACTIONS (4)
  - Urinary tract infection [None]
  - Nausea [None]
  - Therapy cessation [None]
  - Condition aggravated [None]
